FAERS Safety Report 25479399 (Version 2)
Quarter: 2025Q3

REPORT INFORMATION
  Report Type: Spontaneous
  Country: EU (occurrence: EU)
  Receive Date: 20250625
  Receipt Date: 20250704
  Transmission Date: 20251021
  Serious: Yes (Other)
  Sender: NOVARTIS
  Company Number: EU-002147023-NVSC2025FR100820

PATIENT
  Age: 61 Year
  Sex: Male
  Weight: 115 kg

DRUGS (2)
  1. CERITINIB [Suspect]
     Active Substance: CERITINIB
     Indication: Lung neoplasm malignant
     Route: 065
  2. CRIZOTINIB [Concomitant]
     Active Substance: CRIZOTINIB
     Indication: Lung neoplasm malignant
     Route: 065

REACTIONS (1)
  - Nasal abscess [Unknown]
